FAERS Safety Report 5204981-8 (Version None)
Quarter: 2007Q1

REPORT INFORMATION
  Report Type: 
  Country: None (occurrence: None)
  Receive Date: 20070110
  Receipt Date: 20060925
  Transmission Date: 20070707
  Serious: Yes (Hospitalization)
  Sender: FDA-Public Use
  Company Number: US-BRISTOL-MYERS SQUIBB COMPANY-13520077

PATIENT
  Age: 2 Decade
  Sex: Female

DRUGS (1)
  1. ABILIFY [Suspect]
     Dates: start: 20060922, end: 20060901

REACTIONS (1)
  - DYSTONIA [None]
